FAERS Safety Report 12481447 (Version 1)
Quarter: 2016Q2

REPORT INFORMATION
  Report Type: Spontaneous
  Country: US (occurrence: US)
  Receive Date: 20160620
  Receipt Date: 20160620
  Transmission Date: 20160815
  Serious: Yes (Hospitalization)
  Sender: FDA-Public Use
  Company Number: US-BAUSCH-BL-2015-020485

PATIENT
  Age: 87 Year
  Sex: Male

DRUGS (1)
  1. PROVENGE [Suspect]
     Active Substance: SIPULEUCEL-T
     Indication: PRODUCT USED FOR UNKNOWN INDICATION
     Dosage: ONCE
     Route: 065
     Dates: start: 20150810, end: 20150810

REACTIONS (2)
  - Culture positive [Unknown]
  - Sepsis [Unknown]

NARRATIVE: CASE EVENT DATE: 2015
